FAERS Safety Report 4596549-1 (Version None)
Quarter: 2005Q1

REPORT INFORMATION
  Report Type: 
  Country: None (occurrence: None)
  Receive Date: 20050228
  Receipt Date: 20041227
  Transmission Date: 20050727
  Serious: Yes (Death, Hospitalization)
  Sender: FDA-Public Use
  Company Number: 211351

PATIENT
  Age: 61 Year
  Sex: Female

DRUGS (1)
  1. METALYSE (TENECTEPLASE) PWDR + SOLVENT , INJECTION SOLN, 50 MG [Suspect]
     Indication: ACUTE MYOCARDIAL INFARCTION
     Dosage: 40 MG, INTRAVENOUS
     Route: 042
     Dates: start: 20041201, end: 20041201

REACTIONS (2)
  - CARDIO-RESPIRATORY ARREST [None]
  - CARDIOGENIC SHOCK [None]
